FAERS Safety Report 9311347 (Version 2)
Quarter: 2013Q2

REPORT INFORMATION
  Report Type: Spontaneous
  Country: KR (occurrence: KR)
  Receive Date: 20130528
  Receipt Date: 20130607
  Transmission Date: 20140414
  Serious: Yes (Other)
  Sender: FDA-Public Use
  Company Number: KR-JNJFOC-20130510415

PATIENT
  Age: 56 Year
  Sex: Male

DRUGS (1)
  1. ARESTAL [Suspect]
     Indication: DIARRHOEA
     Dosage: 2 DOSAGE FORM
     Route: 048
     Dates: start: 201205

REACTIONS (1)
  - Blood glucose increased [Not Recovered/Not Resolved]
